FAERS Safety Report 24088397 (Version 3)
Quarter: 2024Q3

REPORT INFORMATION
  Report Type: Report from Study
  Country: US (occurrence: US)
  Receive Date: 20240715
  Receipt Date: 20240723
  Transmission Date: 20241017
  Serious: Yes (Other)
  Sender: JOHNSON AND JOHNSON
  Company Number: US-JNJFOC-20240724312

PATIENT
  Age: 47 Year
  Sex: Female

DRUGS (2)
  1. SPRAVATO [Suspect]
     Active Substance: ESKETAMINE
     Indication: Depression
     Dosage: ^56 MG, 1 TOTAL DOSE^
     Dates: start: 20240604, end: 20240604
  2. SPRAVATO [Suspect]
     Active Substance: ESKETAMINE
     Dosage: ^84 MG, 9 TOTAL DOSES^
     Dates: start: 20240606, end: 20240703

REACTIONS (9)
  - Suicidal ideation [Recovered/Resolved]
  - Cognitive disorder [Unknown]
  - Gait disturbance [Unknown]
  - Feeling jittery [Unknown]
  - Feeling abnormal [Unknown]
  - Drug ineffective [Unknown]
  - Amnesia [Unknown]
  - Somnolence [Unknown]
  - Presyncope [Unknown]

NARRATIVE: CASE EVENT DATE: 20240101
